FAERS Safety Report 6421821-X (Version None)
Quarter: 2009Q4

REPORT INFORMATION
  Report Type: 
  Country: None (occurrence: None)
  Receive Date: 20091030
  Receipt Date: 20091022
  Transmission Date: 20100525
  Serious: Yes (Hospitalization)
  Sender: FDA-Public Use
  Company Number: B0599316A

PATIENT
  Age: 48 Year
  Sex: Male

DRUGS (4)
  1. ONDANSETRON [Suspect]
     Route: 042
     Dates: start: 20091013, end: 20091013
  2. DEXAMETHASONE [Concomitant]
     Route: 042
     Dates: start: 20091013, end: 20091013
  3. GEMCITABINE [Concomitant]
     Indication: CHEMOTHERAPY
     Route: 042
     Dates: start: 20091013, end: 20091013
  4. CISPLATIN [Concomitant]
     Indication: CHEMOTHERAPY
     Route: 042
     Dates: start: 20091013, end: 20091013

REACTIONS (3)
  - MIGRAINE [None]
  - NAUSEA [None]
  - PHOTOPHOBIA [None]
